FAERS Safety Report 9571005 (Version 2)
Quarter: 2013Q4

REPORT INFORMATION
  Report Type: Spontaneous
  Country: JP (occurrence: JP)
  Receive Date: 20131001
  Receipt Date: 20131029
  Transmission Date: 20140711
  Serious: Yes (Hospitalization, Other)
  Sender: FDA-Public Use
  Company Number: JP-SHIRE-ALL1-2013-06620

PATIENT
  Sex: Female

DRUGS (2)
  1. FOSRENOL [Suspect]
     Indication: HYPERPHOSPHATAEMIA
     Dosage: 1500 MG, 1X/DAY:QD
     Route: 048
     Dates: start: 2011, end: 2013
  2. FOSRENOL [Suspect]
     Indication: HYPERPHOSPHATAEMIA
     Dosage: UNK, UNKNOWN
     Route: 048
     Dates: start: 2013

REACTIONS (1)
  - Peritonitis [Recovered/Resolved]
